FAERS Safety Report 7089383-4 (Version None)
Quarter: 2010Q4

REPORT INFORMATION
  Report Type: 
  Country: None (occurrence: None)
  Receive Date: 20101108
  Receipt Date: 20100915
  Transmission Date: 20110411
  Serious: No
  Sender: FDA-Public Use
  Company Number: US-BAYER-201021516BCC

PATIENT
  Age: 84 Year
  Sex: Female
  Weight: 49 kg

DRUGS (4)
  1. ALEVE (CAPLET) [Suspect]
     Indication: PRODUCT USED FOR UNKNOWN INDICATION
     Dosage: TOTAL DAILY DOSE: 660 MG  UNIT DOSE: 220 MG
     Route: 048
     Dates: start: 20100901, end: 20100901
  2. EFFEXOR [Concomitant]
     Route: 065
  3. VICODIN [Concomitant]
     Route: 065
  4. ANTIDEPRESSANTS [Concomitant]
     Route: 065

REACTIONS (1)
  - NO ADVERSE EVENT [None]
